FAERS Safety Report 25665515 (Version 1)
Quarter: 2025Q3

REPORT INFORMATION
  Report Type: Spontaneous
  Country: US (occurrence: None)
  Receive Date: 20250810
  Receipt Date: 20250810
  Transmission Date: 20251021
  Serious: Yes (Other)
  Sender: FDA-CTU
  Company Number: None

PATIENT
  Age: 42 Year
  Sex: Female
  Weight: 76.5 kg

DRUGS (3)
  1. CLARITIN REDITABS [Suspect]
     Active Substance: LORATADINE
     Indication: Dust allergy
     Dosage: FREQUENCY : DAILY;?
     Route: 048
     Dates: start: 20200301
  2. CLARITIN REDITABS [Suspect]
     Active Substance: LORATADINE
     Indication: Allergy to animal
  3. FLONASE [Concomitant]
     Active Substance: FLUTICASONE PROPIONATE

REACTIONS (7)
  - Hypersensitivity [None]
  - Therapy non-responder [None]
  - Nasopharyngitis [None]
  - Pruritus [None]
  - Pruritus [None]
  - Pain [None]
  - Scratch [None]

NARRATIVE: CASE EVENT DATE: 20250622
